FAERS Safety Report 5945416-7 (Version None)
Quarter: 2008Q4

REPORT INFORMATION
  Report Type: 
  Country: None (occurrence: None)
  Receive Date: 20081107
  Receipt Date: 20081027
  Transmission Date: 20090506
  Serious: Yes (Hospitalization)
  Sender: FDA-Public Use
  Company Number: FR-PFIZER INC-2008076920

PATIENT
  Sex: Female
  Weight: 74 kg

DRUGS (3)
  1. EPIRUBICIN HYDROCHLORIDE [Suspect]
     Dosage: DAILY DOSE:120MG
     Dates: start: 20030307, end: 20030307
  2. TAXOTERE [Suspect]
     Dosage: DAILY DOSE:60MG
     Route: 042
     Dates: start: 20030103, end: 20030307
  3. MEDROL [Concomitant]
     Indication: PREMEDICATION
     Dosage: DAILY DOSE:16MG
     Route: 048
     Dates: start: 20030307, end: 20030307

REACTIONS (1)
  - HYPERTENSION [None]
